FAERS Safety Report 5952211-1 (Version None)
Quarter: 2008Q4

REPORT INFORMATION
  Report Type: 
  Country: None (occurrence: None)
  Receive Date: 20081022
  Receipt Date: 20080807
  Transmission Date: 20090506
  Serious: No
  Sender: FDA-Public Use
  Company Number: ALL1-2008-02226

PATIENT
  Age: 41 Year
  Sex: Female
  Weight: 56.7 kg

DRUGS (1)
  1. VYVANSE [Suspect]
     Dosage: 70 MG, ORAL
     Route: 048
     Dates: start: 20080711, end: 20080721

REACTIONS (1)
  - HEADACHE [None]
